FAERS Safety Report 23423148 (Version 1)
Quarter: 2024Q1

REPORT INFORMATION
  Report Type: Spontaneous
  Country: CN (occurrence: None)
  Receive Date: 20240119
  Receipt Date: 20240119
  Transmission Date: 20240409
  Serious: Yes (Other)
  Sender: FDA-Public Use
  Company Number: 2024A012629

PATIENT
  Age: 19891 Day
  Sex: Male
  Weight: 55 kg

DRUGS (1)
  1. TICAGRELOR [Suspect]
     Active Substance: TICAGRELOR
     Indication: Percutaneous coronary intervention
     Route: 048
     Dates: start: 20230213, end: 20231221

REACTIONS (5)
  - Blood creatine phosphokinase increased [Recovering/Resolving]
  - Urine output fluctuation [Recovering/Resolving]
  - Blood urine present [Recovering/Resolving]
  - Dyspnoea [Recovering/Resolving]
  - Haemorrhage [Recovering/Resolving]

NARRATIVE: CASE EVENT DATE: 20231205
